FAERS Safety Report 13785887 (Version 2)
Quarter: 2017Q3

REPORT INFORMATION
  Report Type: Spontaneous
  Country: US (occurrence: US)
  Receive Date: 20170725
  Receipt Date: 20170731
  Transmission Date: 20171127
  Serious: Yes (Life-Threatening, Hospitalization, Other)
  Sender: FDA-Public Use
  Company Number: US-VALIDUS PHARMACEUTICALS LLC-US-2017VAL001102

PATIENT
  Age: 55 Year
  Sex: Male

DRUGS (2)
  1. FUROSEMIDE. [Suspect]
     Active Substance: FUROSEMIDE
     Indication: LEFT VENTRICULAR DYSFUNCTION
     Dosage: 20 MG, UNK
     Route: 048
  2. LISINOPRIL. [Suspect]
     Active Substance: LISINOPRIL
     Indication: LEFT VENTRICULAR DYSFUNCTION
     Dosage: 2.5 MG, UNK
     Route: 048

REACTIONS (10)
  - Left ventricle outflow tract obstruction [Recovered/Resolved]
  - Peripheral coldness [Recovered/Resolved]
  - Urine output decreased [Unknown]
  - Jugular vein distension [Recovered/Resolved]
  - Condition aggravated [Recovered/Resolved]
  - Mitral valve incompetence [Recovered/Resolved]
  - Arrhythmia [Recovered/Resolved]
  - Cardiac murmur [Recovered/Resolved]
  - Tachycardia [Recovered/Resolved]
  - Hypotension [Recovered/Resolved]
